FAERS Safety Report 23220497 (Version 1)
Quarter: 2023Q4

REPORT INFORMATION
  Report Type: Report from Study
  Country: FR (occurrence: FR)
  Receive Date: 20231123
  Receipt Date: 20231123
  Transmission Date: 20240109
  Serious: Yes (Other)
  Sender: FDA-Public Use
  Company Number: FR-Merck Healthcare KGaA-2023489372

PATIENT
  Age: 72 Year
  Sex: Female

DRUGS (4)
  1. LEVOTHYROXINE [Suspect]
     Active Substance: LEVOTHYROXINE
     Indication: Autoimmune thyroiditis
     Dosage: DURATION TEXT: FOR YEARS
     Route: 048
  2. ZINC [Concomitant]
     Active Substance: PYRITHIONE ZINC\ZINC\ZINC CHLORIDE
     Indication: Product used for unknown indication
  3. ERGOCALCIFEROL [Concomitant]
     Active Substance: ERGOCALCIFEROL
     Indication: Product used for unknown indication
  4. SELENIUM [Concomitant]
     Active Substance: SELENIUM
     Indication: Prophylaxis

REACTIONS (10)
  - Syncope [Unknown]
  - Toxicity to various agents [Unknown]
  - Paraesthesia oral [Unknown]
  - Paraesthesia [Unknown]
  - Dizziness [Unknown]
  - Hypoaesthesia [Unknown]
  - Dyspnoea [Unknown]
  - Cough [Unknown]
  - Hyperthyroidism [Unknown]
  - Overdose [Unknown]
